FAERS Safety Report 8993281 (Version 1)
Quarter: 2013Q1

REPORT INFORMATION
  Report Type: Spontaneous
  Country: US (occurrence: US)
  Receive Date: 20130102
  Receipt Date: 20130102
  Transmission Date: 20140127
  Serious: No
  Sender: FDA-Public Use
  Company Number: US-BAYER-2012-135268

PATIENT
  Age: 49 Year
  Sex: 0

DRUGS (1)
  1. GADAVIST [Suspect]
     Dosage: 7.5 ML, ONCE

REACTIONS (1)
  - Adverse drug reaction [None]
